FAERS Safety Report 7437288-9 (Version None)
Quarter: 2011Q2

REPORT INFORMATION
  Report Type: 
  Country: None (occurrence: None)
  Receive Date: 20110426
  Receipt Date: 20110419
  Transmission Date: 20111010
  Serious: Yes (Death, Other)
  Sender: FDA-Public Use
  Company Number: US-GENZYME-FLUD-1001083

PATIENT
  Age: 11 Year
  Sex: Male

DRUGS (4)
  1. FLUDARA [Suspect]
     Indication: STEM CELL TRANSPLANT
     Dosage: 30 MG/M2, QDX3 ON DAYS -4 TO -2
     Route: 065
  2. FLUDARA [Suspect]
     Indication: CONGENITAL APLASTIC ANAEMIA
  3. MYCOPHENOLATE MOFETIL [Concomitant]
     Indication: IMMUNOSUPPRESSION
     Dosage: ON DAYS 0 TO 40, THEN TAPERED TO DAY 96
     Route: 065
  4. CYCLOSPORINE [Concomitant]
     Indication: IMMUNOSUPPRESSION
     Dosage: DAYS -3 TO 100, THEN TAPERED TO DAY 177
     Route: 065

REACTIONS (6)
  - GASTROINTESTINAL HAEMORRHAGE [None]
  - BACTERIAL INFECTION [None]
  - FUNGAL INFECTION [None]
  - CHRONIC GRAFT VERSUS HOST DISEASE [None]
  - ACUTE GRAFT VERSUS HOST DISEASE [None]
  - VIRAL INFECTION [None]
